FAERS Safety Report 6160129-7 (Version None)
Quarter: 2009Q2

REPORT INFORMATION
  Report Type: 
  Country: None (occurrence: None)
  Receive Date: 20090420
  Receipt Date: 20090410
  Transmission Date: 20091009
  Serious: Yes (Death, Hospitalization, Congenital Anomaly)
  Sender: FDA-Public Use
  Company Number: A0680422A

PATIENT
  Sex: Male
  Weight: 3.9 kg

DRUGS (3)
  1. PAXIL [Suspect]
     Indication: DRUG USE FOR UNKNOWN INDICATION
  2. PAXIL CR [Suspect]
     Indication: DRUG USE FOR UNKNOWN INDICATION
  3. PRILOSEC [Concomitant]

REACTIONS (9)
  - ASPHYXIA [None]
  - CARDIAC ARREST [None]
  - CONGENITAL ANOMALY [None]
  - CONGENITAL CARDIOVASCULAR ANOMALY [None]
  - CONVULSION [None]
  - DRUG EXPOSURE DURING PREGNANCY [None]
  - DRUG WITHDRAWAL SYNDROME NEONATAL [None]
  - HYPERTONIA [None]
  - SEROTONIN SYNDROME [None]
